FAERS Safety Report 8819861 (Version 4)
Quarter: 2017Q2

REPORT INFORMATION
  Report Type: Spontaneous
  Country: US (occurrence: US)
  Receive Date: 20121001
  Receipt Date: 20170519
  Transmission Date: 20170830
  Serious: Yes (Hospitalization)
  Sender: FDA-Public Use
  Company Number: US-ASTRAZENECA-2012SE74546

PATIENT
  Age: 80 Year
  Sex: Male
  Weight: 79.4 kg

DRUGS (1)
  1. SYMBICORT [Suspect]
     Active Substance: BUDESONIDE\FORMOTEROL FUMARATE DIHYDRATE
     Indication: CHRONIC OBSTRUCTIVE PULMONARY DISEASE
     Dosage: 160/4.5, TWO PUFFS IN THE MORNING AND TWO PUFFS IN THE EVENING
     Route: 055

REACTIONS (7)
  - Hypoacusis [Unknown]
  - Pneumonia [Unknown]
  - Chronic obstructive pulmonary disease [Unknown]
  - Fatigue [Unknown]
  - Anxiety [Unknown]
  - Product quality issue [Unknown]
  - Viral upper respiratory tract infection [Unknown]
